FAERS Safety Report 4369904-2 (Version None)
Quarter: 2004Q2

REPORT INFORMATION
  Report Type: 
  Country: None (occurrence: None)
  Receive Date: 20040527
  Receipt Date: 20040510
  Transmission Date: 20050107
  Serious: Yes (Hospitalization)
  Sender: FDA-Public Use
  Company Number: CA_040306704

PATIENT
  Age: 85 Year
  Sex: Female

DRUGS (8)
  1. ZYPREXA [Suspect]
     Dosage: 2.5 MG AT BEDTIME
  2. ENTROPHEN (ACETYLSALICYLIC ACID) [Concomitant]
  3. LASIX [Concomitant]
  4. COUMADIN [Concomitant]
  5. AMATINE (MIDODRINE HYDROCHLORIDE) [Concomitant]
  6. DESYREL [Concomitant]
  7. SYNTHROID [Concomitant]
  8. PRAVACHOL [Concomitant]

REACTIONS (3)
  - CONDITION AGGRAVATED [None]
  - PULMONARY FIBROSIS [None]
  - SOMNOLENCE [None]
